FAERS Safety Report 8478290-8 (Version None)
Quarter: 2012Q2

REPORT INFORMATION
  Report Type: 
  Country: None (occurrence: None)
  Receive Date: 20120402
  Receipt Date: 20110606
  Transmission Date: 20120825
  Serious: Yes (Hospitalization, Other)
  Sender: FDA-Public Use
  Company Number: 284743USA

PATIENT
  Sex: Female

DRUGS (3)
  1. ALENDRONATE SODIUM [Suspect]
  2. RISEDRONATE SODIUM [Suspect]
  3. ALENDRONATE SODIUM [Suspect]

REACTIONS (3)
  - JAW DISORDER [None]
  - OSTEONECROSIS OF JAW [None]
  - INJURY [None]
